FAERS Safety Report 19748215 (Version 1)
Quarter: 2021Q3

REPORT INFORMATION
  Report Type: Spontaneous
  Country: US (occurrence: US)
  Receive Date: 20210823
  Receipt Date: 20210823
  Transmission Date: 20211014
  Serious: No
  Sender: FDA-Public Use
  Company Number: None

PATIENT
  Age: 64 Year
  Sex: Female
  Weight: 54.9 kg

DRUGS (10)
  1. MULTIVITAMIN WITH OMEGAS [Concomitant]
  2. XIIDRA [Suspect]
     Active Substance: LIFITEGRAST
     Indication: DRY EYE
     Dosage: ?          QUANTITY:1 GTT DROP(S);?
     Route: 047
  3. CALCIUM [Concomitant]
     Active Substance: CALCIUM
  4. HCTZ [Concomitant]
     Active Substance: HYDROCHLOROTHIAZIDE
  5. UVIFEM SUPP [Concomitant]
  6. ZYRTEC [Concomitant]
     Active Substance: CETIRIZINE HYDROCHLORIDE
  7. POTASSIUM [Concomitant]
     Active Substance: POTASSIUM
  8. SINGULAIR [Concomitant]
     Active Substance: MONTELUKAST SODIUM
  9. OLOPATADINE. [Concomitant]
     Active Substance: OLOPATADINE
  10. PEPCID [Concomitant]
     Active Substance: FAMOTIDINE

REACTIONS (1)
  - Paranasal sinus hypersecretion [None]

NARRATIVE: CASE EVENT DATE: 20210818
